FAERS Safety Report 18928195 (Version 1)
Quarter: 2021Q1

REPORT INFORMATION
  Report Type: Spontaneous
  Country: US (occurrence: US)
  Receive Date: 20210223
  Receipt Date: 20210223
  Transmission Date: 20210420
  Serious: Yes (Other)
  Sender: FDA-Public Use
  Company Number: None

PATIENT
  Age: 31 Year
  Sex: Female
  Weight: 56.25 kg

DRUGS (7)
  1. KURVELO (BIRTH CONTROL) [Concomitant]
  2. ASHWAGANDA [Concomitant]
     Active Substance: HERBALS
  3. OMEGA 3 [Concomitant]
     Active Substance: OMEGA-3 FATTY ACIDS
  4. GABAPENTIN. [Concomitant]
     Active Substance: GABAPENTIN
  5. LAMOTRIGINE 25MG TABLETS [Suspect]
     Active Substance: LAMOTRIGINE
     Indication: ANXIETY
     Dosage: ?          QUANTITY:60 TABLET(S);?
     Route: 048
     Dates: start: 20210127, end: 20210223
  6. XANAX [Concomitant]
     Active Substance: ALPRAZOLAM
  7. VITAMIN D [Concomitant]
     Active Substance: VITAMIN D NOS

REACTIONS (8)
  - Intrusive thoughts [None]
  - Suicidal ideation [None]
  - Depression [None]
  - Mental status changes [None]
  - Irritability [None]
  - Feeling of despair [None]
  - Emotional disorder [None]
  - Panic attack [None]

NARRATIVE: CASE EVENT DATE: 20210222
